FAERS Safety Report 19633298 (Version 2)
Quarter: 2021Q3

REPORT INFORMATION
  Report Type: Spontaneous
  Country: US (occurrence: US)
  Receive Date: 20210730
  Receipt Date: 20210804
  Transmission Date: 20211014
  Serious: No
  Sender: FDA-Public Use
  Company Number: US-TEVA-2021-US-1936169

PATIENT
  Age: 69 Year
  Sex: Female

DRUGS (2)
  1. CINQAIR [Suspect]
     Active Substance: RESLIZUMAB
     Indication: ASTHMA
     Dosage: 100 MG /10 ML
     Route: 042
     Dates: start: 202105
  2. CINQAIR [Suspect]
     Active Substance: RESLIZUMAB
     Dosage: 100 MG /10 ML
     Route: 042
     Dates: start: 20210702

REACTIONS (3)
  - Drug ineffective [Unknown]
  - Fatigue [Recovering/Resolving]
  - Asthenia [Recovering/Resolving]

NARRATIVE: CASE EVENT DATE: 2021
